FAERS Safety Report 9381611 (Version 2)
Quarter: 2013Q3

REPORT INFORMATION
  Report Type: Spontaneous
  Country: GB (occurrence: GB)
  Receive Date: 20130703
  Receipt Date: 20130708
  Transmission Date: 20140515
  Serious: Yes (Other)
  Sender: FDA-Public Use
  Company Number: US-UCBSA-090771

PATIENT
  Sex: Female

DRUGS (3)
  1. VIMPAT [Suspect]
  2. VIMPAT [Suspect]
     Dosage: UNSPECIFIED
  3. LAMOTRIGINE [Concomitant]

REACTIONS (3)
  - Grand mal convulsion [Unknown]
  - Cognitive disorder [Unknown]
  - Drug ineffective [Unknown]
